FAERS Safety Report 8445447 (Version 2)
Quarter: 2012Q4

REPORT INFORMATION
  Report Type: 
  Country: US (occurrence: US)
  Receive Date: 20120307
  Receipt Date: 20121015
  Transmission Date: 20130627
  Serious: Yes (Hospitalization)
  Sender: FDA-Public Use
  Company Number: US-BAYER-2012-021310

PATIENT
  Age: 45 Year
  Sex: Female
  Weight: 104.31 kg

DRUGS (13)
  1. YASMIN [Suspect]
     Indication: CONTRACEPTION
     Dosage: UNK
     Dates: start: 20011108, end: 20070603
  2. YASMIN [Suspect]
     Indication: MENSTRUAL CYCLE MANAGEMENT
     Dosage: UNK
     Dates: start: 20070701, end: 20080725
  3. YAZ [Suspect]
     Indication: CONTRACEPTION
     Dosage: UNK
     Dates: start: 20070603, end: 20070701
  4. YAZ [Suspect]
     Indication: MENSTRUAL CYCLE MANAGEMENT
  5. OCELLA [Suspect]
     Indication: CONTRACEPTION
     Dosage: UNK
     Dates: start: 20080820, end: 20090209
  6. OCELLA [Suspect]
     Indication: MENSTRUAL CYCLE MANAGEMENT
  7. PRILOSEC [Concomitant]
     Dosage: 40 mg, Every day
     Route: 048
  8. AZITHROMYCIN [Concomitant]
     Dosage: 250 mg, UNK
     Dates: start: 20081212, end: 20081218
  9. VITAMIN C [Concomitant]
     Dosage: UNK
     Dates: start: 2000
  10. RAMIPRIL [Concomitant]
     Dosage: UNK
     Dates: start: 200802, end: 20100706
  11. METFORMIN [Concomitant]
     Indication: DIABETES MELLITUS
     Dosage: UNK
     Dates: start: 20090209
  12. SINGULAIR [Concomitant]
     Indication: HYPERSENSITIVITY
     Dosage: UNK
     Dates: start: 200802, end: 20100706
  13. NEXIUM [Concomitant]
     Dosage: 40 mg, UNK
     Dates: start: 20081205

REACTIONS (8)
  - Deep vein thrombosis [None]
  - Pulmonary embolism [None]
  - Dyspnoea [None]
  - Pain [None]
  - Injury [None]
  - Emotional distress [None]
  - General physical health deterioration [None]
  - Anxiety [None]
